FAERS Safety Report 7549257 (Version 4)
Quarter: 2013Q4

REPORT INFORMATION
  Report Type: Report from Study
  Country: MX (occurrence: MX)
  Receive Date: 20100822
  Receipt Date: 20131209
  Transmission Date: 20140711
  Serious: Yes (Other)
  Sender: FDA-Public Use
  Company Number: PHHY2010MX52992

PATIENT
  Age: 64 Year
  Sex: Female

DRUGS (22)
  1. CO-DIOVAN [Suspect]
     Indication: HYPERTENSION
     Dosage: UNK UKN, UNK
     Dates: start: 2007, end: 2009
  2. CO-DIOVAN [Suspect]
     Dosage: 1 TABLET (160MG VALSARTAN/12.5 MG HCT) PER DAY
     Dates: start: 201004
  3. CO-DIOVAN [Suspect]
     Dosage: HALF TABLET (160MG VALSARTAN/12.5 MG HCT) PER DAY
     Dates: start: 201103
  4. DIOVAN [Suspect]
     Indication: HYPERTENSION
     Dosage: 1 DF, (80 MG) DAILY
     Route: 048
     Dates: start: 2007
  5. TENORMIN [Concomitant]
  6. TENORMIN [Concomitant]
     Dosage: HALF TABLET PER DAY
  7. CRESTOR [Concomitant]
  8. CONTROLIP [Concomitant]
  9. EZETIMIBE [Concomitant]
  10. ISCOVER [Concomitant]
  11. EVISTA [Concomitant]
  12. LEXOTAN [Concomitant]
  13. BROQUIXOL [Concomitant]
  14. OMEPRAZOLE [Concomitant]
  15. PARACETAMOL [Concomitant]
  16. LYRICA [Concomitant]
  17. ASPIRINA [Concomitant]
     Dosage: UNK UKN, UNK
  18. DIOSMINE [Concomitant]
  19. HESPERIDIN [Concomitant]
  20. RANTUDIL [Concomitant]
     Dosage: UNK UKN, UNK
  21. SIES [Concomitant]
     Dosage: UNK UKN, UNK
  22. OMEPRAZOL//OMEPRAZOLE [Concomitant]
     Dosage: UNK UKN, UNK

REACTIONS (14)
  - Haemorrhoids [Unknown]
  - Cholelithiasis [Not Recovered/Not Resolved]
  - Haematoma [Recovered/Resolved]
  - Fall [Recovered/Resolved]
  - Limb injury [Recovered/Resolved]
  - Joint injury [Recovered/Resolved]
  - Osteoarthritis [Not Recovered/Not Resolved]
  - Fibromyalgia [Not Recovered/Not Resolved]
  - Hypotension [Recovered/Resolved]
  - Ear discomfort [Not Recovered/Not Resolved]
  - Musculoskeletal pain [Recovered/Resolved]
  - Fatigue [Recovered/Resolved]
  - Chest pain [Recovered/Resolved]
  - Wrong technique in drug usage process [Unknown]
